FAERS Safety Report 7363244-5 (Version None)
Quarter: 2011Q1

REPORT INFORMATION
  Report Type: 
  Country: None (occurrence: None)
  Receive Date: 20110321
  Receipt Date: 20110221
  Transmission Date: 20110831
  Serious: No
  Sender: FDA-Public Use
  Company Number: US-B.I. PHARMACEUTICALS,INC./RIDGEFIELD-2011-BP-00620BP

PATIENT
  Sex: Female

DRUGS (10)
  1. UTIRA C [Concomitant]
     Indication: BLADDER DISORDER
  2. PRADAXA [Suspect]
     Indication: CARDIAC ABLATION
  3. PRILOSEC [Concomitant]
     Indication: GASTROOESOPHAGEAL REFLUX DISEASE
  4. SULFACRATE [Concomitant]
  5. TOPROL-XL [Concomitant]
     Indication: ATRIAL FIBRILLATION
  6. PREDNISONE EYE DROPS [Concomitant]
     Indication: CORNEAL TRANSPLANT
  7. PREMARIN [Concomitant]
     Indication: MENOPAUSE
  8. PRADAXA [Suspect]
     Indication: ATRIAL FIBRILLATION
     Dosage: 300 MG
     Route: 048
     Dates: start: 20101101
  9. SYNTHROID [Concomitant]
     Indication: HYPOTHYROIDISM
  10. FLUCONAZOLE [Concomitant]

REACTIONS (6)
  - DIARRHOEA [None]
  - HAEMORRHOIDS [None]
  - DYSPEPSIA [None]
  - WEIGHT DECREASED [None]
  - HAEMORRHOIDAL HAEMORRHAGE [None]
  - PROCTALGIA [None]
